FAERS Safety Report 22306658 (Version 2)
Quarter: 2023Q2

REPORT INFORMATION
  Report Type: Report from Study
  Country: US (occurrence: US)
  Receive Date: 20230511
  Receipt Date: 20230515
  Transmission Date: 20230722
  Serious: No
  Sender: FDA-Public Use
  Company Number: US-002147023-NVSC2023US102745

PATIENT
  Sex: Female

DRUGS (1)
  1. KESIMPTA [Suspect]
     Active Substance: OFATUMUMAB
     Indication: Product used for unknown indication
     Dosage: 0.4 ML (20 MG), QW
     Route: 030

REACTIONS (5)
  - Influenza like illness [Unknown]
  - Headache [Unknown]
  - Oropharyngeal pain [Unknown]
  - Urine odour abnormal [Unknown]
  - Lymphoedema [Recovering/Resolving]
